FAERS Safety Report 9052560 (Version 2)
Quarter: 2013Q1

REPORT INFORMATION
  Report Type: Spontaneous
  Country: JP (occurrence: JP)
  Receive Date: 20130207
  Receipt Date: 20130215
  Transmission Date: 20140127
  Serious: Yes (Life-Threatening, Other)
  Sender: FDA-Public Use
  Company Number: JP-BRISTOL-MYERS SQUIBB COMPANY-17352675

PATIENT
  Age: 68 Year
  Sex: Male

DRUGS (7)
  1. METGLUCO [Suspect]
     Indication: DIABETES MELLITUS
     Route: 048
  2. BISOPROLOL FUMARATE [Concomitant]
     Indication: HYPERTENSION
     Route: 048
  3. BLOPRESS [Concomitant]
     Indication: HYPERTENSION
     Route: 048
  4. ADALAT [Concomitant]
     Indication: HYPERTENSION
     Route: 048
     Dates: end: 20130129
  5. VOGLIBOSE [Concomitant]
     Indication: DIABETES MELLITUS
     Route: 048
     Dates: end: 20130128
  6. EUGLUCAN [Concomitant]
     Indication: DIABETES MELLITUS
     Dates: end: 20130128
  7. BUFFERIN [Concomitant]
     Indication: MYOCARDIAL INFARCTION
     Route: 048

REACTIONS (4)
  - Rhabdomyolysis [Not Recovered/Not Resolved]
  - Liver disorder [Not Recovered/Not Resolved]
  - Lactic acidosis [Recovered/Resolved]
  - Pneumonia [Unknown]
